FAERS Safety Report 14200257 (Version 1)
Quarter: 2017Q4

REPORT INFORMATION
  Report Type: Spontaneous
  Country: FR (occurrence: FR)
  Receive Date: 20171117
  Receipt Date: 20171117
  Transmission Date: 20180321
  Serious: Yes (Hospitalization)
  Sender: FDA-Public Use
  Company Number: FR-PFIZER INC-2017487663

PATIENT
  Age: 64 Year
  Sex: Female

DRUGS (26)
  1. PERFALGAN [Suspect]
     Active Substance: ACETAMINOPHEN
     Dosage: UNK
     Route: 042
     Dates: start: 20170802, end: 20170906
  2. SPASFON /00934601/ [Suspect]
     Active Substance: PHLOROGLUCINOL
     Dosage: UNK
     Dates: start: 20170802, end: 20170906
  3. STILNOX [Concomitant]
     Active Substance: ZOLPIDEM TARTRATE
     Dosage: UNK
     Dates: start: 20170803
  4. DIFFU K [Concomitant]
     Active Substance: POTASSIUM CHLORIDE
     Dosage: UNK
     Dates: start: 20170831, end: 20170912
  5. MORPHINE [Concomitant]
     Active Substance: MORPHINE
     Dosage: UNK
     Route: 042
     Dates: start: 20170906, end: 20170906
  6. CLINOMEL [Suspect]
     Active Substance: AMINO ACIDS\DEXTROSE\ELECTROLYTES NOS\SOYBEAN OIL
     Dosage: UNK
     Dates: start: 20170822, end: 20170906
  7. MYCAMINE [Suspect]
     Active Substance: MICAFUNGIN SODIUM
     Indication: ANTIBIOTIC THERAPY
     Dosage: UNK
     Dates: start: 20170818, end: 20170907
  8. ZOPHREN /00955302/ [Suspect]
     Active Substance: ONDANSETRON
     Dosage: UNK
     Dates: start: 20170810, end: 20170906
  9. DIFFU K [Concomitant]
     Active Substance: POTASSIUM CHLORIDE
     Dosage: UNK
  10. PRIMPERAN [Concomitant]
     Active Substance: METOCLOPRAMIDE HYDROCHLORIDE
     Dosage: UNK
  11. CERNEVIT [Suspect]
     Active Substance: VITAMINS
     Dosage: UNK
     Dates: start: 20170822, end: 20170906
  12. HYDREA [Concomitant]
     Active Substance: HYDROXYUREA
     Indication: POLYCYTHAEMIA VERA
     Dosage: UNK
     Dates: start: 20170802, end: 20170906
  13. HEPARIN [Concomitant]
     Active Substance: HEPARIN SODIUM
     Dosage: UNK
  14. PHOCYTAN [Suspect]
     Active Substance: .ALPHA.-GLUCOSE-1-PHOSPHATE
     Dosage: UNK
     Dates: start: 20170831, end: 20170907
  15. XANAX [Concomitant]
     Active Substance: ALPRAZOLAM
     Dosage: UNK
     Dates: start: 20170816
  16. MAG 2 /00454301/ [Suspect]
     Active Substance: MAGNESIUM CARBONATE
     Dosage: UNK
     Dates: start: 20170821, end: 20170907
  17. PRIMPERAN [Concomitant]
     Active Substance: METOCLOPRAMIDE HYDROCHLORIDE
     Dosage: UNK
     Dates: start: 20170809, end: 20170906
  18. MERONEM [Suspect]
     Active Substance: MEROPENEM
     Indication: ANTIBIOTIC THERAPY
     Dosage: UNK
     Dates: start: 20170818, end: 20170907
  19. VANCOMYCIN HCL [Suspect]
     Active Substance: VANCOMYCIN HYDROCHLORIDE
     Indication: ANTIBIOTIC THERAPY
     Dosage: UNK
     Dates: start: 20170820, end: 20170907
  20. CIFLOX /00697202/ [Suspect]
     Active Substance: CIPROFLOXACIN HYDROCHLORIDE
     Indication: ANTIBIOTIC THERAPY
     Dosage: UNK
     Dates: start: 20170822, end: 20170907
  21. ZOVIRAX [Suspect]
     Active Substance: ACYCLOVIR
     Dosage: UNK
     Dates: start: 20170822, end: 20170907
  22. TOPALGIC (TRAMADOL HYDROCHLORIDE) [Suspect]
     Active Substance: TRAMADOL HYDROCHLORIDE
     Dosage: UNK
     Dates: start: 20170802, end: 20170906
  23. INEXIUM /01479302/ [Suspect]
     Active Substance: ESOMEPRAZOLE MAGNESIUM
     Dosage: UNK
     Dates: start: 20170802, end: 20170907
  24. NIVESTIM [Suspect]
     Active Substance: FILGRASTIM
     Dosage: UNK
     Dates: start: 20170823, end: 20170906
  25. VITAMINE K1 DELAGRANGE [Suspect]
     Active Substance: PHYTONADIONE
     Dosage: UNK
     Dates: start: 20170802, end: 20170908
  26. DECAN /02294001/ [Suspect]
     Active Substance: MINERALS
     Dosage: UNK
     Dates: start: 20170822, end: 20170906

REACTIONS (12)
  - Rash maculo-papular [Recovering/Resolving]
  - Leukocytosis [None]
  - Lymphadenopathy [Recovering/Resolving]
  - Dermatitis exfoliative [Recovering/Resolving]
  - Rash pustular [Recovering/Resolving]
  - Excoriation [Recovering/Resolving]
  - Face oedema [Recovering/Resolving]
  - Gamma-glutamyltransferase increased [None]
  - Oedema peripheral [None]
  - Rash pruritic [Recovering/Resolving]
  - Pyrexia [Recovered/Resolved]
  - Thrombocytosis [None]

NARRATIVE: CASE EVENT DATE: 20170906
